FAERS Safety Report 25844949 (Version 1)
Quarter: 2025Q3

REPORT INFORMATION
  Report Type: Report from Study
  Country: CA (occurrence: CA)
  Receive Date: 20250925
  Receipt Date: 20250925
  Transmission Date: 20251021
  Serious: Yes (Other)
  Sender: ROCHE
  Company Number: CA-ROCHE-10000136698

PATIENT
  Age: 85 Year
  Sex: Female
  Weight: 70 kg

DRUGS (21)
  1. ACTEMRA [Suspect]
     Active Substance: TOCILIZUMAB
     Indication: Rheumatoid arthritis
     Dosage: NO PIRS RECEIVED.
     Route: 042
     Dates: start: 202309, end: 202310
  2. ACTEMRA [Suspect]
     Active Substance: TOCILIZUMAB
     Dosage: NO PIRS RECEIVED.
     Route: 042
     Dates: start: 20241119
  3. ACTEMRA [Suspect]
     Active Substance: TOCILIZUMAB
     Route: 042
     Dates: start: 20180419, end: 20230905
  4. ACTEMRA [Suspect]
     Active Substance: TOCILIZUMAB
     Route: 042
  5. ACTEMRA [Suspect]
     Active Substance: TOCILIZUMAB
     Route: 042
     Dates: start: 2023
  6. ACTEMRA [Suspect]
     Active Substance: TOCILIZUMAB
     Route: 042
     Dates: start: 20180419, end: 20250317
  7. ACTEMRA [Suspect]
     Active Substance: TOCILIZUMAB
     Route: 042
     Dates: start: 20250617
  8. ACTEMRA [Suspect]
     Active Substance: TOCILIZUMAB
     Route: 042
  9. BIOTIN [Concomitant]
     Active Substance: BIOTIN
     Route: 048
  10. CRESTOR [Concomitant]
     Active Substance: ROSUVASTATIN CALCIUM
     Route: 048
  11. DILANTIN [Concomitant]
     Active Substance: PHENYTOIN
     Route: 048
  12. LEVOTHYROXINE [Concomitant]
     Active Substance: LEVOTHYROXINE
     Dosage: 50 MCG
     Route: 048
  13. NAPROXEN [Concomitant]
     Active Substance: NAPROXEN
     Route: 048
  14. Risendronate Sodium [Concomitant]
     Route: 048
  15. ROSUVASTATIN [Concomitant]
     Active Substance: ROSUVASTATIN
  16. SYNTHROID [Concomitant]
     Active Substance: LEVOTHYROXINE SODIUM
  17. FISH OIL [Concomitant]
     Active Substance: FISH OIL
     Route: 048
  18. MINERALS\VITAMINS [Concomitant]
     Active Substance: MINERALS\VITAMINS
     Route: 048
  19. RISPERIDONE [Concomitant]
     Active Substance: RISPERIDONE
     Route: 048
  20. FOLIC ACID [Concomitant]
     Active Substance: FOLIC ACID
     Route: 048
  21. PREDNISONE [Concomitant]
     Active Substance: PREDNISONE

REACTIONS (6)
  - Pneumonia [Recovered/Resolved]
  - Weight decreased [Unknown]
  - Off label use [Unknown]
  - Cough [Recovered/Resolved]
  - Off label use [Unknown]
  - Platelet count decreased [Unknown]

NARRATIVE: CASE EVENT DATE: 20241028
